FAERS Safety Report 7014956-4 (Version None)
Quarter: 2010Q3

REPORT INFORMATION
  Report Type: 
  Country: None (occurrence: None)
  Receive Date: 20100927
  Receipt Date: 20091009
  Transmission Date: 20110219
  Serious: No
  Sender: FDA-Public Use
  Company Number: US-ASTRAZENECA-2009SE19235

PATIENT
  Sex: Female
  Weight: 73.5 kg

DRUGS (2)
  1. ARIMIDEX [Suspect]
     Route: 048
     Dates: start: 20081001, end: 20090401
  2. ARIMIDEX [Suspect]
     Route: 048
     Dates: start: 20090728

REACTIONS (5)
  - ALOPECIA [None]
  - ARTHRALGIA [None]
  - DIARRHOEA [None]
  - DYSSTASIA [None]
  - HEADACHE [None]
